FAERS Safety Report 8988087 (Version 1)
Quarter: 2012Q4

REPORT INFORMATION
  Report Type: 
  Country: US (occurrence: US)
  Receive Date: 20121227
  Receipt Date: 20121227
  Transmission Date: 20130627
  Serious: No
  Sender: FDA-Public Use
  Company Number: US-PFIZER INC-2012329965

PATIENT
  Age: 57 Year
  Sex: Female
  Weight: 113.4 kg

DRUGS (14)
  1. PRAVASTATIN [Concomitant]
     Dosage: 40 mg, UNK
  2. HYDROCODONE [Concomitant]
     Dosage: 10/325 mg
  3. LYRICA [Suspect]
     Indication: NEUROPATHY
     Dosage: 75 mg, 2x/day
     Route: 048
     Dates: start: 2011
  4. LOVAZA [Concomitant]
     Dosage: UNK
  5. METFORMIN [Concomitant]
     Dosage: 500 mg, UNK
  6. ULORIC [Concomitant]
     Dosage: 40 mg, UNK
  7. CITALOPRAM [Concomitant]
     Dosage: 20 mg, UNK
  8. LEVOTHYROXINE [Concomitant]
     Dosage: 100 ug, UNK
  9. HYDROCHLOROTHIAZIDE [Concomitant]
     Dosage: 25 mg, UNK
  10. AMILORIDE [Concomitant]
     Dosage: 5 mg, UNK
  11. LISINOPRIL [Concomitant]
     Dosage: 10 mg, UNK
  12. JANUVIA [Concomitant]
     Dosage: 50 mg, UNK
  13. GLYBURIDE [Concomitant]
     Dosage: 5 mg, UNK
  14. BUMEX [Concomitant]
     Dosage: 1 mg, UNK

REACTIONS (1)
  - Nasopharyngitis [Not Recovered/Not Resolved]
